FAERS Safety Report 4425904-5 (Version None)
Quarter: 2004Q3

REPORT INFORMATION
  Report Type: 
  Country: None (occurrence: None)
  Receive Date: 20040719
  Receipt Date: 20030815
  Transmission Date: 20050211
  Serious: Yes (Hospitalization)
  Sender: FDA-Public Use
  Company Number: 177636

PATIENT
  Age: 53 Year
  Sex: Female
  Weight: 113.3993 kg

DRUGS (7)
  1. AVONEX [Suspect]
     Indication: MULTIPLE SCLEROSIS
     Dosage: 30 MCG QW IM
     Route: 030
     Dates: start: 19960601
  2. TOPAMAX [Concomitant]
  3. BACLOFEN [Concomitant]
  4. XANAX [Concomitant]
  5. PROZAC [Concomitant]
  6. AMBIEN [Concomitant]
  7. REMERON [Concomitant]

REACTIONS (4)
  - BLOOD PRESSURE DECREASED [None]
  - MULTIPLE SCLEROSIS [None]
  - MULTIPLE SCLEROSIS RELAPSE [None]
  - STOMATITIS [None]
